FAERS Safety Report 10036390 (Version 1)
Quarter: 2014Q1

REPORT INFORMATION
  Report Type: Spontaneous
  Country: US (occurrence: US)
  Receive Date: 20140325
  Receipt Date: 20140325
  Transmission Date: 20141002
  Serious: Yes (Death, Other)
  Sender: FDA-Public Use
  Company Number: US-PFIZER INC-2014081987

PATIENT
  Age: 51 Year
  Sex: Female

DRUGS (1)
  1. REVATIO [Suspect]
     Indication: CHRONIC OBSTRUCTIVE PULMONARY DISEASE
     Dosage: 20 MG, UNK

REACTIONS (2)
  - Pulmonary hypertension [Fatal]
  - Cardiac failure [Fatal]
